FAERS Safety Report 8134692-0 (Version None)
Quarter: 2012Q1

REPORT INFORMATION
  Report Type: 
  Country: None (occurrence: None)
  Receive Date: 20120209
  Receipt Date: 20120201
  Transmission Date: 20120608
  Serious: Yes (Life-Threatening, Hospitalization)
  Sender: FDA-Public Use
  Company Number: AUR-APL-2012-00733

PATIENT
  Age: 56 Year
  Sex: Female

DRUGS (3)
  1. LAMOTRIGINE [Suspect]
     Indication: TEMPORAL LOBE EPILEPSY
     Dosage: 25 MG, ORAL
     Route: 048
  2. VALPROATE SODIUM [Suspect]
     Indication: TEMPORAL LOBE EPILEPSY
     Dosage: 2 GM, ORAL
     Route: 048
  3. CLOBAZAM (CLOBAZAM) [Suspect]
     Indication: TEMPORAL LOBE EPILEPSY
     Dosage: 10 MG, ORAL
     Route: 048

REACTIONS (4)
  - NEUTROPENIC SEPSIS [None]
  - URINARY TRACT INFECTION [None]
  - PYREXIA [None]
  - BONE MARROW FAILURE [None]
